FAERS Safety Report 10147454 (Version 1)
Quarter: 2014Q2

REPORT INFORMATION
  Report Type: Spontaneous
  Country: US (occurrence: US)
  Receive Date: 20140501
  Receipt Date: 20140501
  Transmission Date: 20141212
  Serious: Yes (Other)
  Sender: FDA-Public Use
  Company Number: US-009507513-1404USA013474

PATIENT
  Age: 21 Year
  Sex: Female
  Weight: 87.75 kg

DRUGS (1)
  1. IMPLANON [Suspect]
     Indication: CONTRACEPTION
     Dosage: UNK, EVERY 3 YEARS
     Route: 059
     Dates: start: 20110628, end: 20140414

REACTIONS (7)
  - Surgery [Recovered/Resolved]
  - Menstruation irregular [Unknown]
  - Device deployment issue [Unknown]
  - Incorrect route of drug administration [Unknown]
  - Device dislocation [Unknown]
  - Device difficult to use [Unknown]
  - Medical device complication [Unknown]
